FAERS Safety Report 17779959 (Version 6)
Quarter: 2020Q4

REPORT INFORMATION
  Report Type: Spontaneous
  Country: CA (occurrence: CA)
  Receive Date: 20200514
  Receipt Date: 20201209
  Transmission Date: 20210113
  Serious: Yes (Other)
  Sender: FDA-Public Use
  Company Number: CA-CELLTRION INC.-2019CA023292

PATIENT

DRUGS (21)
  1. INFLECTRA [Suspect]
     Active Substance: INFLIXIMAB-DYYB
     Dosage: 10 MG/KG OR 700MG, EVERY 6 WEEKS
     Route: 042
     Dates: start: 20200616, end: 20200616
  2. INFLECTRA [Suspect]
     Active Substance: INFLIXIMAB-DYYB
     Dosage: 10 MG/KG OR 700MG, EVERY 6 WEEKS
     Route: 042
     Dates: start: 20200730, end: 20200730
  3. INFLECTRA [Suspect]
     Active Substance: INFLIXIMAB-DYYB
     Dosage: 10 MG/KG OR 700MG, EVERY 6 WEEKS
     Route: 042
     Dates: start: 20201130
  4. INFLECTRA [Suspect]
     Active Substance: INFLIXIMAB-DYYB
     Dosage: 10 MG/KG OR 700MG, EVERY 6 WEEKS
     Route: 042
     Dates: start: 20191113, end: 20191113
  5. SULFASALAZINE. [Concomitant]
     Active Substance: SULFASALAZINE
     Dosage: 4000 MG, 1X/DAY
     Route: 065
  6. INFLECTRA [Suspect]
     Active Substance: INFLIXIMAB-DYYB
     Dosage: 10 MG/KG OR 700MG, EVERY 6 WEEKS
     Route: 042
     Dates: start: 20200326, end: 20200326
  7. INFLECTRA [Suspect]
     Active Substance: INFLIXIMAB-DYYB
     Dosage: 10 MG/KG OR 700MG, EVERY 6 WEEKS
     Route: 042
     Dates: start: 20200326, end: 20200326
  8. INFLECTRA [Suspect]
     Active Substance: INFLIXIMAB-DYYB
     Indication: CROHN^S DISEASE
     Dosage: 10 MG/KG OR 700MG, EVERY 6 WEEEKS
     Route: 042
     Dates: start: 20190821, end: 20190821
  9. INFLECTRA [Suspect]
     Active Substance: INFLIXIMAB-DYYB
     Dosage: 10 MG/KG OR 700MG, EVERY 6 WEEEKS
     Route: 042
     Dates: start: 20191004, end: 20191004
  10. INFLECTRA [Suspect]
     Active Substance: INFLIXIMAB-DYYB
     Dosage: 10 MG/KG OR 700MG, EVERY 6 WEEKS
     Route: 042
     Dates: start: 20200730
  11. INFLECTRA [Suspect]
     Active Substance: INFLIXIMAB-DYYB
     Dosage: 10 MG/KG OR 700MG, EVERY 6 WEEEKS
     Route: 042
     Dates: start: 20191004, end: 20191004
  12. INFLECTRA [Suspect]
     Active Substance: INFLIXIMAB-DYYB
     Dosage: 10 MG/KG OR 700MG, EVERY 6 WEEKS
     Route: 042
     Dates: start: 20200623, end: 20200623
  13. INFLECTRA [Suspect]
     Active Substance: INFLIXIMAB-DYYB
     Dosage: 10 MG/KG OR 700MG, EVERY 6 WEEKS
     Route: 042
     Dates: start: 20201019
  14. IRON FERROUS GLUCONATE [Concomitant]
     Active Substance: FERROUS GLUCONATE
     Dosage: UNK
     Route: 065
  15. INFLECTRA [Suspect]
     Active Substance: INFLIXIMAB-DYYB
     Dosage: 10 MG/KG OR 700MG, EVERY 6 WEEEKS
     Route: 042
     Dates: start: 20191004, end: 20191004
  16. INFLECTRA [Suspect]
     Active Substance: INFLIXIMAB-DYYB
     Dosage: 10 MG/KG OR 700MG, EVERY 6 WEEKS
     Route: 042
     Dates: start: 20191231, end: 20191231
  17. INFLECTRA [Suspect]
     Active Substance: INFLIXIMAB-DYYB
     Dosage: 10 MG/KG OR 700MG, EVERY 6 WEEKS
     Route: 042
     Dates: start: 20200220, end: 20200220
  18. INFLECTRA [Suspect]
     Active Substance: INFLIXIMAB-DYYB
     Dosage: 10 MG/KG OR 700MG, EVERY 6 WEEKS
     Route: 042
     Dates: start: 20200909
  19. FOSAMAX [Concomitant]
     Active Substance: ALENDRONATE SODIUM
     Dosage: UNK
     Route: 065
  20. PROPRANOLOL [Concomitant]
     Active Substance: PROPRANOLOL HYDROCHLORIDE
     Dosage: UNK
     Route: 065
  21. INFLECTRA [Suspect]
     Active Substance: INFLIXIMAB-DYYB
     Dosage: 10 MG/KG OR 700MG, EVERY 6 WEEKS
     Route: 042
     Dates: start: 20200507, end: 20200507

REACTIONS (12)
  - Heart rate decreased [Unknown]
  - Aphthous ulcer [Unknown]
  - Off label use [Unknown]
  - Sinusitis [Unknown]
  - Drug ineffective [Unknown]
  - Intentional product use issue [Unknown]
  - Condition aggravated [Not Recovered/Not Resolved]
  - Drug level above therapeutic [Unknown]
  - Drug specific antibody present [Unknown]
  - Arthralgia [Unknown]
  - Compression fracture [Unknown]
  - Fall [Unknown]

NARRATIVE: CASE EVENT DATE: 20190821
